FAERS Safety Report 9290289 (Version 2)
Quarter: 2014Q1

REPORT INFORMATION
  Report Type: Spontaneous
  Country: US (occurrence: US)
  Receive Date: 20130515
  Receipt Date: 20140123
  Transmission Date: 20141002
  Serious: No
  Sender: FDA-Public Use
  Company Number: US-PFIZER INC-2013148403

PATIENT
  Age: 54 Year
  Sex: Female

DRUGS (11)
  1. DILANTIN-125 [Suspect]
     Dosage: UNK
  2. ZALEPLON [Suspect]
     Dosage: UNK
  3. PHENYTOIN [Suspect]
     Dosage: UNK
  4. DIAZEPAM [Suspect]
     Dosage: UNK
  5. SONATA [Suspect]
     Dosage: UNK
  6. VALIUM [Suspect]
     Dosage: UNK
  7. VICODIN [Suspect]
     Dosage: UNK
  8. PHENOBARB [Suspect]
     Dosage: UNK
  9. ACETAMINOPHEN [Suspect]
     Dosage: UNK
  10. HYDROCODONE [Suspect]
     Dosage: UNK
  11. PHENOBARBITAL [Suspect]
     Dosage: UNK

REACTIONS (1)
  - Drug hypersensitivity [Unknown]
